FAERS Safety Report 9593860 (Version 1)
Quarter: 2013Q4

REPORT INFORMATION
  Report Type: Spontaneous
  Country: US (occurrence: US)
  Receive Date: 20131004
  Receipt Date: 20131004
  Transmission Date: 20140711
  Serious: No
  Sender: FDA-Public Use
  Company Number: US-BAYER-2013-120234

PATIENT
  Age: 86 Year
  Sex: Female
  Weight: 52.15 kg

DRUGS (5)
  1. ALEVE GELCAPS [Suspect]
     Indication: ARTHRALGIA
     Dosage: 1 DF, QD
     Route: 048
     Dates: start: 201308
  2. CALCIUM [CALCIUM] [Concomitant]
     Dosage: UNK
  3. LOVASTATIN [Concomitant]
     Dosage: UNK
  4. LISINOPRIL [Concomitant]
     Dosage: UNK
  5. BAYER ASPIRIN REGIMEN ADULT LOW STRENGTH [Concomitant]
     Dosage: UNK

REACTIONS (2)
  - Drug ineffective [None]
  - Incorrect drug administration duration [None]
